FAERS Safety Report 4487668-9 (Version None)
Quarter: 2004Q4

REPORT INFORMATION
  Report Type: 
  Country: None (occurrence: None)
  Receive Date: 20041025
  Receipt Date: 20041015
  Transmission Date: 20050328
  Serious: Yes (Hospitalization)
  Sender: FDA-Public Use
  Company Number: 2004-121383-NL

PATIENT
  Age: 59 Year
  Sex: Male

DRUGS (7)
  1. VECURONIUM BROMIDE [Suspect]
     Indication: INDUCTION OF ANAESTHESIA
     Dosage: INTRAVENOUS (NOS)
     Route: 042
  2. PROPOFOL [Suspect]
     Indication: INDUCTION OF ANAESTHESIA
     Dosage: INTRAVENOUS (NOS)
     Route: 042
  3. SEVOFLURANE [Suspect]
     Indication: MAINTENANCE OF ANAESTHESIA
     Dosage: RESPIRATORY (INHALATION)
     Route: 055
  4. OXYGEN [Concomitant]
  5. ROPIVACAINE [Concomitant]
  6. BUPRENORPHINE HCL [Concomitant]
  7. ROPIVACAINE [Concomitant]

REACTIONS (7)
  - BACK PAIN [None]
  - HYPOAESTHESIA [None]
  - INJECTION SITE SWELLING [None]
  - MUSCULOSKELETAL DISORDER [None]
  - POST PROCEDURAL COMPLICATION [None]
  - POST PROCEDURAL OEDEMA [None]
  - RHABDOMYOLYSIS [None]
